FAERS Safety Report 7680932-1 (Version None)
Quarter: 2011Q3

REPORT INFORMATION
  Report Type: 
  Country: None (occurrence: None)
  Receive Date: 20110809
  Receipt Date: 20110725
  Transmission Date: 20111222
  Serious: Yes (Death, Other)
  Sender: FDA-Public Use
  Company Number: HA11-174-AE

PATIENT
  Age: 86 Year
  Sex: Male

DRUGS (1)
  1. TRAMADOL HCL [Suspect]
     Dosage: 50MG- 19 DOSES - 10 DAYS

REACTIONS (17)
  - ARRHYTHMIA [None]
  - CONGESTIVE CARDIOMYOPATHY [None]
  - PLEURAL EFFUSION [None]
  - NEPHROSCLEROSIS [None]
  - CEREBRAL ATROPHY [None]
  - PULMONARY OEDEMA [None]
  - BLOOD GLUCOSE INCREASED [None]
  - CEREBRAL ARTERIOSCLEROSIS [None]
  - ARCUS LIPOIDES [None]
  - ARTERIOSCLEROSIS CORONARY ARTERY [None]
  - BLOOD POTASSIUM INCREASED [None]
  - ARTERIOSCLEROSIS [None]
  - DILATATION VENTRICULAR [None]
  - TOXICITY TO VARIOUS AGENTS [None]
  - MUCOSAL EROSION [None]
  - RENAL CYST [None]
  - METAPLASIA [None]
